FAERS Safety Report 6672301-8 (Version None)
Quarter: 2010Q2

REPORT INFORMATION
  Report Type: 
  Country: None (occurrence: None)
  Receive Date: 20100408
  Receipt Date: 20100330
  Transmission Date: 20101027
  Serious: Yes (Other)
  Sender: FDA-Public Use
  Company Number: JP-PFIZER INC-2010041639

PATIENT
  Age: 60 Year
  Sex: Female

DRUGS (8)
  1. CEFAZOLIN [Suspect]
     Dosage: UNK
  2. CLINDAMYCIN HYDROCHLORIDE [Suspect]
     Indication: STAPHYLOCOCCAL SEPSIS
     Dosage: UNK
  3. MINOCYCLINE [Suspect]
     Indication: STAPHYLOCOCCAL SEPSIS
     Dosage: UNK
  4. GALENIC /PANIPENEM/BETAMIPRON/ [Suspect]
     Indication: STAPHYLOCOCCAL SEPSIS
     Dosage: UNK
  5. MEROPENEM [Concomitant]
     Indication: SEPTIC EMBOLUS
     Dosage: UNK
  6. VANCOMYCIN [Concomitant]
     Indication: SEPTIC EMBOLUS
     Dosage: UNK
  7. LINEZOLID [Concomitant]
     Indication: SEPTIC EMBOLUS
  8. AMPICILLIN SODIUM/SULBACTAM SODIUM [Concomitant]
     Indication: STAPHYLOCOCCAL SEPSIS
     Dosage: UNK

REACTIONS (4)
  - CONDITION AGGRAVATED [None]
  - EOSINOPHILIA [None]
  - PYREXIA [None]
  - SUBCUTANEOUS ABSCESS [None]
